FAERS Safety Report 5242812-0 (Version None)
Quarter: 2007Q1

REPORT INFORMATION
  Report Type: 
  Country: None (occurrence: None)
  Receive Date: 20061201
  Receipt Date: 20060819
  Transmission Date: 20070707
  Serious: No
  Sender: FDA-Public Use
  Company Number: 2006PV019748

PATIENT
  Age: 58 Year
  Sex: Female
  Weight: 100.2449 kg

DRUGS (2)
  1. BYETTA [Suspect]
     Indication: DIABETES MELLITUS NON-INSULIN-DEPENDENT
     Dosage: 5 MCG;BID;SC
     Route: 058
     Dates: start: 20060520
  2. IMODIUM A-D [Concomitant]

REACTIONS (4)
  - DIARRHOEA [None]
  - EARLY SATIETY [None]
  - FEELING ABNORMAL [None]
  - WEIGHT DECREASED [None]
